FAERS Safety Report 6131274-7 (Version None)
Quarter: 2009Q1

REPORT INFORMATION
  Report Type: 
  Country: None (occurrence: None)
  Receive Date: 20090325
  Receipt Date: 20080219
  Transmission Date: 20090719
  Serious: No
  Sender: FDA-Public Use
  Company Number: US-BRISTOL-MYERS SQUIBB COMPANY-14084305

PATIENT
  Age: 5 Decade
  Sex: Male

DRUGS (6)
  1. ERBITUX [Suspect]
     Indication: COLORECTAL CANCER
  2. FLUOROURACIL [Concomitant]
  3. OXALIPLATIN [Concomitant]
  4. AVASTIN [Concomitant]
  5. IRINOTECAN HCL [Concomitant]
  6. BENADRYL [Concomitant]
     Indication: PREMEDICATION

REACTIONS (2)
  - FLUSHING [None]
  - MUCOSAL INFLAMMATION [None]
